FAERS Safety Report 9103985 (Version 2)
Quarter: 2013Q1

REPORT INFORMATION
  Report Type: Spontaneous
  Country: DE (occurrence: DE)
  Receive Date: 20130219
  Receipt Date: 20130318
  Transmission Date: 20140127
  Serious: Yes (Death, Hospitalization, Other)
  Sender: FDA-Public Use
  Company Number: DE-ELI_LILLY_AND_COMPANY-DE201302003921

PATIENT
  Sex: Male

DRUGS (11)
  1. BYDUREON [Suspect]
     Indication: DIABETES MELLITUS
     Dosage: 2 MG, WEEKLY (1/W)
     Route: 058
     Dates: start: 201301
  2. MARCUMAR [Concomitant]
  3. BISOPROLOL [Concomitant]
  4. ALLOPURINOL [Concomitant]
  5. VIANI [Concomitant]
  6. SPIRIVA [Concomitant]
  7. LOSARTAN [Concomitant]
  8. METFORMIN [Concomitant]
  9. LANITOP [Concomitant]
  10. HALDOL [Concomitant]
  11. DIAZEPAM [Concomitant]

REACTIONS (5)
  - Death [Fatal]
  - Pulmonary oedema [Unknown]
  - Dementia [Unknown]
  - Chills [Unknown]
  - Somnolence [Unknown]
